FAERS Safety Report 4312033-4 (Version None)
Quarter: 2004Q1

REPORT INFORMATION
  Report Type: 
  Country: None (occurrence: None)
  Receive Date: 20040305
  Receipt Date: 20040219
  Transmission Date: 20041129
  Serious: Yes (Hospitalization, Other)
  Sender: FDA-Public Use
  Company Number: PHRM2004FR00939

PATIENT
  Age: 52 Year
  Sex: Female
  Weight: 85 kg

DRUGS (1)
  1. COTAREG [Suspect]
     Indication: HYPERTENSION
     Dosage: 1 DF, QD
     Route: 048
     Dates: start: 20030507, end: 20030901

REACTIONS (3)
  - DIABETES MELLITUS [None]
  - GENITAL PRURITUS FEMALE [None]
  - HYPERGLYCAEMIA [None]
